FAERS Safety Report 24087891 (Version 1)
Quarter: 2024Q3

REPORT INFORMATION
  Report Type: Report from Study
  Country: US (occurrence: US)
  Receive Date: 20240715
  Receipt Date: 20240715
  Transmission Date: 20241016
  Serious: Yes (Other)
  Sender: ABBVIE
  Company Number: US-ABBVIE-5836602

PATIENT
  Age: 46 Year
  Sex: Male

DRUGS (1)
  1. SKYRIZI [Suspect]
     Active Substance: RISANKIZUMAB-RZAA
     Indication: Psoriasis
     Route: 058
     Dates: start: 20210319

REACTIONS (4)
  - Knee operation [Recovering/Resolving]
  - Joint effusion [Recovering/Resolving]
  - Post procedural complication [Recovering/Resolving]
  - Bone fragmentation [Unknown]

NARRATIVE: CASE EVENT DATE: 20240101
